FAERS Safety Report 8238465-X (Version None)
Quarter: 2012Q1

REPORT INFORMATION
  Report Type: 
  Country: None (occurrence: None)
  Receive Date: 20120323
  Receipt Date: 20120316
  Transmission Date: 20120608
  Serious: Yes (Hospitalization)
  Sender: FDA-Public Use
  Company Number: 2012SP012301

PATIENT
  Age: 42 Year
  Sex: Female

DRUGS (5)
  1. REBAMIPIDE [Concomitant]
  2. ROCAIN [Concomitant]
  3. TIZANIDINE HCL [Concomitant]
  4. DEXAMETHASONE SODIUM PHOSPHATE [Suspect]
     Indication: BACK PAIN
     Dosage: 3.8 MG;IV
     Route: 042
     Dates: start: 20111224, end: 20111224
  5. LOXOMARIN (LOXOPROFEN SODIUM HYDRATE) [Concomitant]

REACTIONS (1)
  - ACUTE GENERALISED EXANTHEMATOUS PUSTULOSIS [None]
